FAERS Safety Report 16290021 (Version 1)
Quarter: 2019Q2

REPORT INFORMATION
  Report Type: Report from Study
  Country: BE (occurrence: BE)
  Receive Date: 20190509
  Receipt Date: 20190509
  Transmission Date: 20190711
  Serious: Yes (Death, Other)
  Sender: FDA-Public Use
  Company Number: BE-BRISTOL-MYERS SQUIBB COMPANY-BMS-2019-044913

PATIENT
  Age: 76 Year
  Sex: Male
  Weight: 70.4 kg

DRUGS (1)
  1. NIVOLUMAB [Suspect]
     Active Substance: NIVOLUMAB
     Indication: EPITHELIOID MESOTHELIOMA
     Dosage: UNK
     Route: 065
     Dates: start: 20180508, end: 20190423

REACTIONS (2)
  - Malignant neoplasm progression [Unknown]
  - Death [Fatal]
